FAERS Safety Report 8769494 (Version 2)
Quarter: 2012Q4

REPORT INFORMATION
  Report Type: 
  Country: CA (occurrence: CA)
  Receive Date: 20120913
  Receipt Date: 20120913
  Transmission Date: 20130627
  Serious: Yes (Death)
  Sender: FDA-Public Use
  Company Number: PHHY2012CA075689

PATIENT
  Sex: Female

DRUGS (7)
  1. ACLASTA [Suspect]
     Indication: OSTEOPOROSIS
     Dosage: UNK UKN, UNK yearly
     Route: 042
     Dates: start: 20090922
  2. ACLASTA [Suspect]
     Dosage: UNK UKN, UNK yearly
     Route: 042
     Dates: start: 20101004
  3. ACLASTA [Suspect]
     Dosage: UNK UKN, UNK, yearly
     Route: 042
     Dates: start: 20111031
  4. PANTOPRAZOLE [Concomitant]
     Dosage: 40 mg, OD
  5. MAVIK [Concomitant]
     Dosage: 4 mg, OD
  6. CELEBREX [Concomitant]
     Dosage: 200 mg, OD
  7. OXAZEPAM [Concomitant]
     Dosage: 15 mg, OD

REACTIONS (2)
  - Idiopathic pulmonary fibrosis [Fatal]
  - Concomitant disease progression [Fatal]
